FAERS Safety Report 6614582-2 (Version None)
Quarter: 2010Q1

REPORT INFORMATION
  Report Type: 
  Country: None (occurrence: None)
  Receive Date: 20100304
  Receipt Date: 20100304
  Transmission Date: 20100710
  Serious: Yes (Other)
  Sender: FDA-Public Use
  Company Number: None

PATIENT
  Age: 56 Year
  Sex: Female
  Weight: 69.8539 kg

DRUGS (1)
  1. LUMIGAN [Suspect]
     Indication: GLAUCOMA
     Dosage: ONE DROP IN EACH EYE NIGHTLY OPTHALMIC
     Dates: start: 20080202, end: 20090207

REACTIONS (11)
  - BLEPHARITIS [None]
  - BLEPHAROSPASM [None]
  - DRY EYE [None]
  - DRY SKIN [None]
  - EYE DISCHARGE [None]
  - EYELID OEDEMA [None]
  - GROWTH OF EYELASHES [None]
  - INSOMNIA [None]
  - MUSCLE TWITCHING [None]
  - PHOTOPHOBIA [None]
  - UNEVALUABLE EVENT [None]
